FAERS Safety Report 9052249 (Version 1)
Quarter: 2013Q1

REPORT INFORMATION
  Report Type: Report from Study
  Country: BO (occurrence: BO)
  Receive Date: 20130206
  Receipt Date: 20130206
  Transmission Date: 20140127
  Serious: Yes (Death, Other)
  Sender: FDA-Public Use
  Company Number: PHHY2013BO010725

PATIENT
  Age: 65 Year
  Sex: Female

DRUGS (1)
  1. GLIVEC [Suspect]
     Indication: CHRONIC MYELOID LEUKAEMIA
     Dosage: 400 MG, DAILY
     Route: 048
     Dates: start: 20120919

REACTIONS (4)
  - Lung neoplasm malignant [Fatal]
  - Second primary malignancy [Fatal]
  - Respiratory failure [Fatal]
  - Leukopenia [Unknown]
